FAERS Safety Report 7789348-0 (Version None)
Quarter: 2011Q3

REPORT INFORMATION
  Report Type: 
  Country: None (occurrence: None)
  Receive Date: 20110930
  Receipt Date: 20110801
  Transmission Date: 20111222
  Serious: Yes (Other)
  Sender: FDA-Public Use
  Company Number: BE-GLAXOSMITHKLINE-B0737178A

PATIENT
  Sex: Male

DRUGS (1)
  1. HYCAMTIN [Suspect]
     Indication: PRODUCT USED FOR UNKNOWN INDICATION
     Route: 065

REACTIONS (2)
  - NEUTROPENIA [None]
  - EXPIRED DRUG ADMINISTERED [None]
